FAERS Safety Report 10070168 (Version 1)
Quarter: 2014Q2

REPORT INFORMATION
  Report Type: Spontaneous
  Country: SG (occurrence: None)
  Receive Date: 20140408
  Receipt Date: 20140408
  Transmission Date: 20141212
  Serious: Yes (Other)
  Sender: FDA-Public Use
  Company Number: 2271533

PATIENT
  Age: 70 Year
  Sex: Female

DRUGS (1)
  1. HEPARIN SODIUM [Suspect]
     Indication: COAGULOPATHY
     Dosage: 50 U/HOUR, UNKNOWN

REACTIONS (3)
  - Anaphylactic reaction [None]
  - Hypotension [None]
  - Dyspnoea [None]
